FAERS Safety Report 11237259 (Version 1)
Quarter: 2015Q3

REPORT INFORMATION
  Report Type: Spontaneous
  Country: FR (occurrence: FR)
  Receive Date: 20150703
  Receipt Date: 20150703
  Transmission Date: 20151125
  Serious: Yes (Other)
  Sender: FDA-Public Use
  Company Number: US-ASTRAZENECA-2015SE63184

PATIENT
  Age: 67 Year
  Sex: Female

DRUGS (19)
  1. LOVENOX [Suspect]
     Active Substance: ENOXAPARIN SODIUM
     Dosage: 1 DF; EVERY DAY; 4000 IU ANTI-XA/0.4 ML
     Route: 058
     Dates: start: 20150508
  2. SUFENTANIL [Concomitant]
     Active Substance: SUFENTANIL
     Dosage: 30 ?G, ONCE HOUR
     Dates: start: 20150507, end: 20150508
  3. OXYCODONE [Suspect]
     Active Substance: OXYCODONE
     Route: 042
     Dates: start: 20150509
  4. PARACETAMOL [Suspect]
     Active Substance: ACETAMINOPHEN
     Route: 048
     Dates: start: 20150508
  5. AMIKLIN [Concomitant]
     Active Substance: AMIKACIN SULFATE
     Route: 042
     Dates: start: 20150507, end: 20150508
  6. PHOCYTAN [Concomitant]
     Active Substance: .ALPHA.-GLUCOSE-1-PHOSPHATE
     Dosage: 2 ML, ONCE HOUR
     Route: 042
     Dates: start: 20150509
  7. KETAMINE [Concomitant]
     Active Substance: KETAMINE
     Dosage: 50 MG, ONCE HOUR
     Route: 042
     Dates: start: 20150507, end: 20150508
  8. REMIFENTANIL HYDROCHLORIDE [Suspect]
     Active Substance: REMIFENTANIL HYDROCHLORIDE
     Dosage: 200 ?G, ONCE HOUR
     Route: 042
     Dates: start: 20150513
  9. MICAFUNGIN [Suspect]
     Active Substance: MICAFUNGIN
     Route: 042
     Dates: start: 20150511, end: 20150518
  10. MIDAZOLAM [Concomitant]
     Active Substance: MIDAZOLAM\MIDAZOLAM HYDROCHLORIDE
     Route: 042
     Dates: start: 20150507, end: 20150508
  11. CISATRACURIUM. [Concomitant]
     Active Substance: CISATRACURIUM
     Dosage: 10 MG, ONCE PER HOUR
     Route: 042
     Dates: start: 20150507, end: 20150508
  12. METRONIDAZOLE. [Suspect]
     Active Substance: METRONIDAZOLE
     Route: 042
     Dates: start: 20150507, end: 20150517
  13. PHLOROGLUCINOL [Suspect]
     Active Substance: PHLOROGLUCINOL
     Dosage: 40 MG, SIX TIMES DAILY AS NEEDED
     Route: 042
     Dates: start: 20150513
  14. LEVOCARNITINE. [Concomitant]
     Active Substance: LEVOCARNITINE
     Route: 042
     Dates: start: 20150513
  15. ESOMEPRAZOLE SODIUM. [Suspect]
     Active Substance: ESOMEPRAZOLE SODIUM
     Route: 042
     Dates: start: 20150507
  16. OXYCODONE [Suspect]
     Active Substance: OXYCODONE
     Route: 042
     Dates: end: 20150513
  17. TAZOCILLINE [Suspect]
     Active Substance: PIPERACILLIN SODIUM\TAZOBACTAM SODIUM
     Dosage: 1  DF; FOUR TIMES A DAY; 4 G/500 MG
     Route: 042
     Dates: start: 20150507, end: 20150518
  18. NEFOPAM HYDROCHLORIDE [Suspect]
     Active Substance: NEFOPAM HYDROCHLORIDE
     Route: 042
     Dates: start: 20150509
  19. NOREPINEPHRINE [Concomitant]
     Active Substance: NOREPINEPHRINE\NOREPINEPHRINE BITARTRATE
     Dosage: UNK, AS NEEDED
     Route: 042

REACTIONS (2)
  - Cholestasis [Not Recovered/Not Resolved]
  - Hepatocellular injury [Not Recovered/Not Resolved]

NARRATIVE: CASE EVENT DATE: 20150513
